FAERS Safety Report 9742873 (Version 2)
Quarter: 2013Q4

REPORT INFORMATION
  Report Type: Spontaneous
  Country: GB (occurrence: GB)
  Receive Date: 20131210
  Receipt Date: 20131210
  Transmission Date: 20140711
  Serious: Yes (Life-Threatening, Hospitalization)
  Sender: FDA-Public Use
  Company Number: GB-WATSON-2013-15937

PATIENT
  Age: 14 Year
  Sex: Female
  Weight: 63 kg

DRUGS (2)
  1. TOPIRAMATE (UNKNOWN) [Suspect]
     Indication: TENSION HEADACHE
     Dosage: 25 MG, DAILY
     Route: 048
     Dates: start: 201211
  2. TOPIRAMATE (UNKNOWN) [Suspect]
     Indication: MIGRAINE
     Dosage: 75 MG, BID
     Route: 048

REACTIONS (5)
  - Suicide attempt [Recovering/Resolving]
  - Suicidal ideation [Recovering/Resolving]
  - Depression [Recovering/Resolving]
  - Mood altered [Recovering/Resolving]
  - Social problem [Unknown]
